FAERS Safety Report 9477119 (Version 2)
Quarter: 2013Q4

REPORT INFORMATION
  Report Type: Spontaneous
  Country: US (occurrence: US)
  Receive Date: 20130826
  Receipt Date: 20131008
  Transmission Date: 20140711
  Serious: No
  Sender: FDA-Public Use
  Company Number: US-PFIZER INC-2013244214

PATIENT
  Sex: Male

DRUGS (5)
  1. PROCARDIA [Suspect]
     Dosage: UNK
  2. JANUVIA [Suspect]
     Dosage: UNK
  3. CRESTOR [Suspect]
     Dosage: UNK
  4. TOPROL [Suspect]
     Dosage: UNK
  5. RHINOCORT [Suspect]
     Dosage: UNK

REACTIONS (1)
  - Drug hypersensitivity [Unknown]
